FAERS Safety Report 15806135 (Version 1)
Quarter: 2018Q4

REPORT INFORMATION
  Report Type: Spontaneous
  Country: US (occurrence: US)
  Receive Date: 20181214
  Receipt Date: 20181214
  Transmission Date: 20190205
  Serious: Yes (Life-Threatening, Hospitalization, Disabling, Other)
  Sender: FDA-Public Use
  Company Number: None

PATIENT
  Age: 52 Year
  Sex: Male
  Weight: 114.3 kg

DRUGS (10)
  1. IRBESARTAN. [Suspect]
     Active Substance: IRBESARTAN
     Indication: HYPERTENSION
     Dosage: ?          QUANTITY:30 TABLET(S);?
     Route: 048
     Dates: end: 20180901
  2. CLONIDINE. [Concomitant]
     Active Substance: CLONIDINE
  3. PROPRANOLOL [Suspect]
     Active Substance: PROPRANOLOL HYDROCHLORIDE
  4. B1 [Concomitant]
  5. COQ10 [Concomitant]
     Active Substance: UBIDECARENONE
  6. VITAMIN C [Concomitant]
     Active Substance: ASCORBIC ACID
  7. HYDRALAZINE [Suspect]
     Active Substance: HYDRALAZINE HYDROCHLORIDE
     Indication: HYPERTENSION
     Dosage: ?          QUANTITY:30 TABLET(S);?
     Route: 048
     Dates: start: 20110428, end: 20180902
  8. BAYER [Concomitant]
     Active Substance: ASPIRIN
  9. LOSARTAN/HZTC [Suspect]
     Active Substance: HYDROCHLOROTHIAZIDE\LOSARTAN
  10. ZINC. [Concomitant]
     Active Substance: ZINC

REACTIONS (6)
  - Nausea [None]
  - Hypersensitivity [None]
  - Facial pain [None]
  - Cerebrovascular accident [None]
  - Injury [None]
  - Fall [None]
